APPROVED DRUG PRODUCT: EMPAVELI
Active Ingredient: PEGCETACOPLAN
Strength: 1080MG/20ML (54MG/ML)
Dosage Form/Route: SOLUTION;SUBCUTANEOUS
Application: N215014 | Product #001
Applicant: APELLIS PHARMACEUTICALS INC
Approved: May 14, 2021 | RLD: Yes | RS: Yes | Type: RX

PATENTS:
Patent 12290566 | Expires: Dec 14, 2038
Patent 12290566 | Expires: Dec 14, 2038
Patent 11040107 | Expires: Apr 9, 2038
Patent 11040107 | Expires: Apr 9, 2038
Patent 11040107 | Expires: Apr 9, 2038
Patent 11292815 | Expires: Nov 15, 2033
Patent 11292815 | Expires: Nov 15, 2033
Patent 12290566 | Expires: Dec 14, 2038
Patent 12290566 | Expires: Dec 14, 2038
Patent 12290566 | Expires: Dec 14, 2038
Patent 11844841 | Expires: Dec 9, 2038
Patent 11661441 | Expires: Jan 13, 2033
Patent 11292815 | Expires: Nov 15, 2033
Patent 11292815 | Expires: Nov 15, 2033
Patent 11040107 | Expires: Apr 9, 2038
Patent 10875893 | Expires: Nov 15, 2033
Patent 9169307 | Expires: Nov 18, 2027
Patent 11661441 | Expires: Jan 13, 2033
Patent 10875893 | Expires: Nov 15, 2033
Patent 9169307 | Expires: Nov 18, 2027
Patent 11844841 | Expires: Dec 9, 2038
Patent 11844841 | Expires: Dec 9, 2038
Patent 11844841 | Expires: Dec 9, 2038
Patent 10125171 | Expires: Aug 2, 2033
Patent 7989589 | Expires: Dec 4, 2027
Patent 10035822 | Expires: Nov 15, 2033
Patent 7888323 | Expires: Dec 4, 2027

EXCLUSIVITY:
Code: I-972 | Date: Jul 28, 2028
Code: M-288 | Date: Feb 8, 2026
Code: NCE | Date: May 14, 2026
Code: ODE-351 | Date: May 14, 2028